FAERS Safety Report 12003869 (Version 1)
Quarter: 2016Q1

REPORT INFORMATION
  Report Type: Report from Study
  Country: US (occurrence: US)
  Receive Date: 20160204
  Receipt Date: 20160204
  Transmission Date: 20160526
  Serious: No
  Sender: FDA-Public Use
  Company Number: US-AMGEN-USASL2016010870

PATIENT
  Age: 58 Year
  Sex: Female

DRUGS (1)
  1. ENBREL [Suspect]
     Active Substance: ETANERCEPT
     Indication: PSORIASIS
     Dosage: UNK UNK, TWICE PER WEEK
     Route: 065
     Dates: start: 20160118

REACTIONS (4)
  - Thermal burn [Unknown]
  - Insomnia [Unknown]
  - Drug effect delayed [Unknown]
  - Pruritus [Unknown]

NARRATIVE: CASE EVENT DATE: 201601
